FAERS Safety Report 9459214 (Version 1)
Quarter: 2013Q3

REPORT INFORMATION
  Report Type: Report from Study
  Country: US (occurrence: US)
  Receive Date: 20130814
  Receipt Date: 20130814
  Transmission Date: 20140515
  Serious: Yes (Hospitalization)
  Sender: FDA-Public Use
  Company Number: US-B.I. PHARMACEUTICALS,INC./RIDGEFIELD-2013-BI-24666GD

PATIENT
  Age: 71 Year
  Sex: Male

DRUGS (10)
  1. PRADAXA [Suspect]
     Dosage: 300 MG
     Route: 048
  2. MULTAQ [Suspect]
  3. BYSTOLIC [Concomitant]
  4. SYNTHROID [Concomitant]
  5. TRICOR [Concomitant]
  6. METFORMIN HYDROCHLORIDE [Concomitant]
  7. TRAMADOL HYDROCHLORIDE [Concomitant]
  8. GLIPIZIDE [Concomitant]
  9. LIPITOR [Concomitant]
  10. NIASPAN [Concomitant]

REACTIONS (4)
  - Melaena [Unknown]
  - Lower gastrointestinal haemorrhage [Unknown]
  - Haematochezia [Unknown]
  - Drug interaction [Unknown]
